FAERS Safety Report 20592056 (Version 6)
Quarter: 2022Q4

REPORT INFORMATION
  Report Type: Report from Study
  Country: GB (occurrence: GB)
  Receive Date: 20220314
  Receipt Date: 20221021
  Transmission Date: 20230113
  Serious: Yes (Death, Hospitalization, Other)
  Sender: FDA-Public Use
  Company Number: GB-ROCHE-1836249

PATIENT
  Age: 33 Year
  Sex: Female

DRUGS (92)
  1. ENHERTU [Suspect]
     Active Substance: FAM-TRASTUZUMAB DERUXTECAN-NXKI
     Indication: HER2 positive breast cancer
     Dosage: 441 MG
     Route: 042
     Dates: start: 20160202, end: 20160203
  2. ENHERTU [Suspect]
     Active Substance: FAM-TRASTUZUMAB DERUXTECAN-NXKI
     Dosage: 567 MG, QD
     Route: 042
     Dates: start: 20160609, end: 20160609
  3. ENHERTU [Suspect]
     Active Substance: FAM-TRASTUZUMAB DERUXTECAN-NXKI
     Dosage: 420 MG, ONCE EVERY 3 WK
     Route: 042
     Dates: start: 20160701, end: 20160727
  4. ENHERTU [Suspect]
     Active Substance: FAM-TRASTUZUMAB DERUXTECAN-NXKI
     Dosage: 420 MG, ONCE EVERY 1 WK
     Route: 042
     Dates: start: 20160701
  5. ENHERTU [Suspect]
     Active Substance: FAM-TRASTUZUMAB DERUXTECAN-NXKI
     Dosage: 420 MG, ONCE EVERY 1 WK
     Route: 042
     Dates: start: 20160907, end: 20160926
  6. ENHERTU [Suspect]
     Active Substance: FAM-TRASTUZUMAB DERUXTECAN-NXKI
     Dosage: 452 MG, ONCE EVERY 3 WK
     Route: 042
     Dates: start: 20161021, end: 20161111
  7. ENHERTU [Suspect]
     Active Substance: FAM-TRASTUZUMAB DERUXTECAN-NXKI
     Dosage: 420 MG, ONCE EVERY 1 WK
     Route: 042
     Dates: start: 20161111, end: 20170519
  8. ENHERTU [Suspect]
     Active Substance: FAM-TRASTUZUMAB DERUXTECAN-NXKI
     Dosage: 452 MG, ONCE EVERY 1 WK
     Route: 042
     Dates: start: 20161202, end: 20170203
  9. ENHERTU [Suspect]
     Active Substance: FAM-TRASTUZUMAB DERUXTECAN-NXKI
     Dosage: 452 MG, ONCE EVERY 1 WK
     Route: 042
     Dates: start: 20161202, end: 20170203
  10. ENHERTU [Suspect]
     Active Substance: FAM-TRASTUZUMAB DERUXTECAN-NXKI
     Dosage: 420 MG, ONCE EVERY 3 WK
     Route: 042
     Dates: start: 20170224, end: 20170407
  11. ENHERTU [Suspect]
     Active Substance: FAM-TRASTUZUMAB DERUXTECAN-NXKI
     Dosage: 452 MG, ONCE EVERY 1 WK
     Route: 042
     Dates: start: 20170428, end: 20170519
  12. ENHERTU [Suspect]
     Active Substance: FAM-TRASTUZUMAB DERUXTECAN-NXKI
     Dosage: 453 MG, ONCE EVERY 1 WK
     Route: 042
     Dates: start: 20170519, end: 20171228
  13. ENHERTU [Suspect]
     Active Substance: FAM-TRASTUZUMAB DERUXTECAN-NXKI
     Dosage: 473 MG, ONCE EVERY 1 WK
     Route: 042
     Dates: start: 20170519, end: 20171228
  14. ENHERTU [Suspect]
     Active Substance: FAM-TRASTUZUMAB DERUXTECAN-NXKI
     Dosage: 567 MG, ONCE EVERY 3 WK
     Route: 042
     Dates: start: 20170612, end: 20171228
  15. ENHERTU [Suspect]
     Active Substance: FAM-TRASTUZUMAB DERUXTECAN-NXKI
     Dosage: 452 MG, ONCE EVERY 3 WK
     Route: 042
     Dates: start: 20180131
  16. PERTUZUMAB [Suspect]
     Active Substance: PERTUZUMAB
     Indication: HER2 positive breast cancer
     Dosage: 840 MG, QD
     Route: 042
     Dates: start: 20160609, end: 20160609
  17. PERTUZUMAB [Suspect]
     Active Substance: PERTUZUMAB
     Dosage: 840 MG, ONCE EVERY 1 WK
     Route: 042
     Dates: start: 20160609, end: 20160609
  18. PERTUZUMAB [Suspect]
     Active Substance: PERTUZUMAB
     Dosage: 420 MG, ONCE EVERY 3 WK
     Route: 042
     Dates: start: 20160701, end: 20171228
  19. ADO-TRASTUZUMAB EMTANSINE [Suspect]
     Active Substance: ADO-TRASTUZUMAB EMTANSINE
     Indication: HER2 positive breast cancer
     Dosage: 280 MG, ONCE EVERY 3 WK
     Route: 042
     Dates: start: 20180131, end: 20180131
  20. ADO-TRASTUZUMAB EMTANSINE [Suspect]
     Active Substance: ADO-TRASTUZUMAB EMTANSINE
     Dosage: 230
     Route: 042
     Dates: start: 20180131
  21. DOCETAXEL [Suspect]
     Active Substance: DOCETAXEL
     Indication: HER2 positive breast cancer
     Dosage: 110 MG, ONCE EVERY 3 WK
     Route: 042
     Dates: start: 20160202, end: 20160203
  22. DOCETAXEL [Suspect]
     Active Substance: DOCETAXEL
     Dosage: 1 NG
     Route: 042
     Dates: start: 20170616
  23. DOCETAXEL [Suspect]
     Active Substance: DOCETAXEL
     Dosage: 500 MG, BID
     Route: 042
     Dates: start: 20170617
  24. DOCETAXEL [Suspect]
     Active Substance: DOCETAXEL
     Dosage: 130 MG, ONCE EVERY 3 WK
     Route: 042
     Dates: start: 20160701, end: 20160727
  25. DOCETAXEL [Suspect]
     Active Substance: DOCETAXEL
     Dosage: 130 MG, ONCE EVERY 3 WK
     Route: 042
     Dates: start: 20160727
  26. DOCETAXEL [Suspect]
     Active Substance: DOCETAXEL
     Dosage: 110 MG, ONCE EVERY 3 WK
     Route: 042
     Dates: start: 20160907, end: 20161021
  27. DOCETAXEL [Suspect]
     Active Substance: DOCETAXEL
     Dosage: 108 MG, ONCE EVERY 3 WK
     Route: 042
     Dates: start: 20161111, end: 20161111
  28. DOCETAXEL [Suspect]
     Active Substance: DOCETAXEL
     Dosage: 108 MG, ONCE EVERY 3 WK
     Route: 042
     Dates: start: 20161111, end: 20161111
  29. ANASTROZOLE [Suspect]
     Active Substance: ANASTROZOLE
     Indication: HER2 positive breast cancer
     Dosage: 1 MG, QD
     Route: 048
     Dates: start: 20180606, end: 20190904
  30. ANASTROZOLE [Suspect]
     Active Substance: ANASTROZOLE
     Dosage: UNK
     Route: 048
  31. ANASTROZOLE [Suspect]
     Active Substance: ANASTROZOLE
     Dosage: 1 MG, QD
     Route: 048
     Dates: start: 20180606
  32. TAMOXIFEN [Suspect]
     Active Substance: TAMOXIFEN
     Indication: HER2 positive breast cancer
     Dosage: UNK
     Route: 048
     Dates: start: 20170623, end: 20171228
  33. TAMOXIFEN [Suspect]
     Active Substance: TAMOXIFEN
     Dosage: UNK
     Route: 048
     Dates: start: 20180213, end: 20180605
  34. SENNA [Concomitant]
     Active Substance: SENNA LEAF\SENNOSIDES\SENNOSIDES A AND B
     Indication: HER2 positive breast cancer
     Dosage: 15 MG
     Dates: start: 20160722, end: 20161011
  35. FILGRASTIM [Concomitant]
     Active Substance: FILGRASTIM
     Dosage: 300 UG
     Dates: start: 20160731, end: 20161112
  36. ENOXAPARIN [Concomitant]
     Active Substance: ENOXAPARIN
     Dosage: DAILY
     Route: 058
     Dates: start: 20180214, end: 20180218
  37. ENOXAPARIN [Concomitant]
     Active Substance: ENOXAPARIN
     Dosage: 1200 MG
     Route: 058
     Dates: start: 20180212, end: 20180212
  38. ENOXAPARIN [Concomitant]
     Active Substance: ENOXAPARIN
     Dosage: 40 MG
     Route: 058
     Dates: start: 20180105, end: 20180115
  39. ENOXAPARIN [Concomitant]
     Active Substance: ENOXAPARIN
     Dosage: 40 MG
     Route: 058
     Dates: start: 20170616, end: 20170623
  40. ENOXAPARIN [Concomitant]
     Active Substance: ENOXAPARIN
     Dosage: 40 MG
     Route: 058
     Dates: start: 20160817, end: 20160914
  41. ALBUTEROL [Concomitant]
     Active Substance: ALBUTEROL
     Dosage: 3 MG
     Route: 055
     Dates: start: 20170616, end: 20170618
  42. ALBUTEROL [Concomitant]
     Active Substance: ALBUTEROL
     Dosage: 3 MG
     Route: 055
     Dates: start: 20160822, end: 20160908
  43. MEROPENEM [Concomitant]
     Active Substance: MEROPENEM
     Dosage: 1 G
     Route: 042
     Dates: start: 20160809, end: 20160817
  44. CALCIUM CARBONATE\CHOLECALCIFEROL [Concomitant]
     Active Substance: CALCIUM CARBONATE\CHOLECALCIFEROL
     Dosage: 0.5 UNK DAILY
     Route: 048
     Dates: start: 20170621
  45. LEVETIRACETAM [Concomitant]
     Active Substance: LEVETIRACETAM
     Dosage: 1 G
     Route: 042
     Dates: start: 20161009, end: 20161017
  46. LEVETIRACETAM [Concomitant]
     Active Substance: LEVETIRACETAM
     Dosage: 1 G
     Route: 042
     Dates: start: 20170616, end: 20170616
  47. LEVETIRACETAM [Concomitant]
     Active Substance: LEVETIRACETAM
     Dosage: 500 MG, BID
     Route: 042
     Dates: start: 20170617
  48. LEVETIRACETAM [Concomitant]
     Active Substance: LEVETIRACETAM
     Dosage: 1 G
     Route: 042
     Dates: start: 20170617
  49. LEVETIRACETAM [Concomitant]
     Active Substance: LEVETIRACETAM
     Dosage: 0.5 - DAILY
     Route: 042
     Dates: start: 20170617
  50. RANITIDINE [Concomitant]
     Active Substance: RANITIDINE
     Dosage: 50 MG
     Route: 048
     Dates: start: 20170617, end: 20170618
  51. COTRIMOXAZOLE [Concomitant]
     Active Substance: SULFAMETHOXAZOLE\TRIMETHOPRIM
     Dosage: 483 MG
     Route: 048
     Dates: start: 20180131, end: 20180131
  52. METOCLOPRAMIDE [Concomitant]
     Active Substance: METOCLOPRAMIDE
     Dosage: 10 MG
     Route: 048
     Dates: start: 20160610, end: 20161111
  53. METOCLOPRAMIDE [Concomitant]
     Active Substance: METOCLOPRAMIDE
     Dosage: 10 MG
     Route: 048
     Dates: start: 20180106, end: 20180106
  54. METOCLOPRAMIDE [Concomitant]
     Active Substance: METOCLOPRAMIDE
     Dosage: 10 MG
     Route: 048
     Dates: start: 20180106, end: 20180106
  55. METOCLOPRAMIDE [Concomitant]
     Active Substance: METOCLOPRAMIDE
     Dosage: 10 MG
     Route: 048
     Dates: start: 20180131
  56. AMOXICILLIN [Concomitant]
     Active Substance: AMOXICILLIN
     Dosage: UNK; QD
     Route: 048
     Dates: start: 201712, end: 201712
  57. CHLORPHENIRAMINE MALEATE [Concomitant]
     Active Substance: CHLORPHENIRAMINE MALEATE
     Dosage: 10 MG
     Route: 042
     Dates: start: 20160907, end: 20160907
  58. CHLORPHENIRAMINE MALEATE [Concomitant]
     Active Substance: CHLORPHENIRAMINE MALEATE
     Dosage: 10 MG
     Route: 042
     Dates: start: 20160928, end: 20170724
  59. HYDROCORTISONE [Concomitant]
     Active Substance: HYDROCORTISONE
     Dosage: 100 MG
     Route: 042
     Dates: start: 20160907, end: 20160907
  60. HYDROCORTISONE [Concomitant]
     Active Substance: HYDROCORTISONE
     Dosage: 1 G;
     Route: 042
     Dates: start: 20170616, end: 20170616
  61. HYDROCORTISONE [Concomitant]
     Active Substance: HYDROCORTISONE
     Dosage: 500 MG PER 0.5 DAY;
     Route: 042
     Dates: start: 20170617
  62. HYDROCORTISONE [Concomitant]
     Active Substance: HYDROCORTISONE
     Dosage: 100 MG
     Route: 042
     Dates: start: 20160928
  63. ORAMORPH SR SUSTAINED RELEASE [Concomitant]
     Active Substance: MORPHINE SULFATE
     Dosage: 15 MG
     Dates: start: 20180213, end: 20180217
  64. ORAMORPH SR SUSTAINED RELEASE [Concomitant]
     Active Substance: MORPHINE SULFATE
     Dosage: 3 MG
     Route: 048
     Dates: start: 20160828
  65. SULFAMETHOXAZOLE\TRIMETHOPRIM [Concomitant]
     Active Substance: SULFAMETHOXAZOLE\TRIMETHOPRIM
     Dosage: 2112 MG
     Route: 042
     Dates: start: 20160811, end: 20160816
  66. CODEINE PHOSPHATE [Concomitant]
     Active Substance: CODEINE PHOSPHATE
     Dosage: 10 ML
     Route: 048
     Dates: start: 20170619, end: 20170619
  67. LEVOMEPROMAZINE [Concomitant]
     Active Substance: LEVOMEPROMAZINE
     Route: 058
     Dates: start: 20170908, end: 20170925
  68. LEVOMEPROMAZINE [Concomitant]
     Active Substance: LEVOMEPROMAZINE
     Dosage: 6 MG
     Route: 058
     Dates: start: 20170617, end: 20170617
  69. SODIUM CHLORIDE [Concomitant]
     Active Substance: SODIUM CHLORIDE
     Dosage: 5 ML
     Route: 055
     Dates: start: 20170616, end: 20170623
  70. ZOPICLONE [Concomitant]
     Active Substance: ZOPICLONE
     Dosage: 4 MG
     Route: 048
     Dates: start: 20170618, end: 20170619
  71. ONDANSETRON [Concomitant]
     Active Substance: ONDANSETRON
     Dosage: 8 MILLIGRAM 3/D
     Route: 048
     Dates: start: 20170616, end: 20170626
  72. ONDANSETRON [Concomitant]
     Active Substance: ONDANSETRON
     Dosage: 8 MILLIGRAM 3/D
     Route: 048
     Dates: start: 20170902
  73. OSELTAMIVIR [Concomitant]
     Active Substance: OSELTAMIVIR
     Dosage: 15 MILLIGRAM, BID
     Route: 048
     Dates: start: 20180213, end: 20180217
  74. CASSIA SENNA FRUIT EXTRACT [Concomitant]
     Dosage: 15 MILLIGRAM, QD
     Dates: start: 20160722
  75. CYCLIZINE [Concomitant]
     Active Substance: CYCLIZINE
     Dosage: 150 MG, QD
     Dates: start: 20170902
  76. DEXAMETHASONE [Concomitant]
     Active Substance: DEXAMETHASONE
     Dosage: 8 MG, QD
     Dates: start: 20160610, end: 20160610
  77. DEXAMETHASONE [Concomitant]
     Active Substance: DEXAMETHASONE
     Dosage: 40 MG, BID (DOSE FORM: 32)
     Dates: start: 20160722, end: 20160723
  78. DEXAMETHASONE [Concomitant]
     Active Substance: DEXAMETHASONE
     Dosage: 8 MILLIGRAM, QD
     Dates: start: 20160803, end: 20160805
  79. DEXAMETHASONE [Concomitant]
     Active Substance: DEXAMETHASONE
     Dosage: 1 DF (DOSE FORM: 32)
     Dates: start: 20160805, end: 201609
  80. DEXAMETHASONE [Concomitant]
     Active Substance: DEXAMETHASONE
     Dosage: 8 UNK; (DOSE FORM: 32)
     Dates: start: 20170616, end: 20170616
  81. DEXAMETHASONE [Concomitant]
     Active Substance: DEXAMETHASONE
     Dosage: 4 MG, BID
     Dates: start: 20170616, end: 20170902
  82. DEXAMETHASONE [Concomitant]
     Active Substance: DEXAMETHASONE
     Dosage: 2 MG, QD (DOSE FORM: 32)
     Dates: start: 20170902, end: 20180110
  83. DEXAMETHASONE [Concomitant]
     Active Substance: DEXAMETHASONE
     Dosage: 4 MG, QD (DOSE FORM: 32)
     Dates: start: 20180110
  84. DEXAMETHASONE [Concomitant]
     Active Substance: DEXAMETHASONE
     Dosage: 1 DOSAGE FORM, QD
     Dates: start: 20190805, end: 201909
  85. DEXAMETHASONE [Concomitant]
     Active Substance: DEXAMETHASONE
     Dosage: 2 MG, QD (DOSE FORM: 32)
     Dates: start: 20200111
  86. ACETAMINOPHEN [Concomitant]
     Active Substance: ACETAMINOPHEN
     Dosage: 1 G
     Route: 048
     Dates: start: 20160722, end: 20160724
  87. ACETAMINOPHEN [Concomitant]
     Active Substance: ACETAMINOPHEN
     Dosage: 1 G
     Route: 048
     Dates: start: 20160803
  88. ACETAMINOPHEN [Concomitant]
     Active Substance: ACETAMINOPHEN
     Dosage: 1 G
     Route: 048
     Dates: start: 20170903
  89. RAMIPRIL [Concomitant]
     Active Substance: RAMIPRIL
     Indication: Product used for unknown indication
     Dates: start: 20160722
  90. RAMIPRIL [Concomitant]
     Active Substance: RAMIPRIL
     Dosage: 2 MG
  91. SENNA LEAF [Concomitant]
     Active Substance: SENNA LEAF
     Dates: start: 20160722
  92. PIPERACILLIN SODIUM [Concomitant]
     Active Substance: PIPERACILLIN SODIUM
     Indication: Product used for unknown indication
     Dosage: 4.5 MG, TID
     Dates: start: 20180212, end: 20180214

REACTIONS (15)
  - Nausea [Fatal]
  - Ejection fraction decreased [Fatal]
  - Pain in jaw [Fatal]
  - Excessive eye blinking [Fatal]
  - Back pain [Fatal]
  - Lower respiratory tract infection [Fatal]
  - Hyponatraemia [Fatal]
  - Dyspnoea [Fatal]
  - Vomiting [Fatal]
  - Pneumonia [Fatal]
  - Seizure [Fatal]
  - Diarrhoea [Fatal]
  - Chest pain [Fatal]
  - Disease progression [Fatal]
  - Off label use [Fatal]

NARRATIVE: CASE EVENT DATE: 20160722
